FAERS Safety Report 22822806 (Version 5)
Quarter: 2023Q4

REPORT INFORMATION
  Report Type: Report from Study
  Country: US (occurrence: US)
  Receive Date: 20230815
  Receipt Date: 20231228
  Transmission Date: 20240109
  Serious: Yes (Other)
  Sender: FDA-Public Use
  Company Number: US-ABBVIE-4713035

PATIENT
  Age: 78 Year
  Sex: Male

DRUGS (16)
  1. VENCLEXTA [Suspect]
     Active Substance: VENETOCLAX
     Indication: Plasma cell myeloma
     Dosage: FORM STRENGTH: 100 MILLIGRAM?THREE TABLET BY MOUTH DAILY
     Route: 048
  2. SINGULAIR [Concomitant]
     Active Substance: MONTELUKAST SODIUM
     Indication: Product used for unknown indication
     Dosage: TAKE ONE TABLET BY MOUTH EVERY NIGHT AT BED TIME THE DAY OF INJECTION, AS WELL AS THE FOLLOWING 2...
     Route: 048
  3. SENOKOT [Concomitant]
     Active Substance: SENNOSIDES
     Indication: Constipation
     Dosage: TAKE ONE TABLET (8.6 MG TOTAL) BY MOUTH DAILY AS NEEDED?FORM STRENGTH: 8.6 MILLIGRAM
     Route: 048
  4. NORCO [Concomitant]
     Active Substance: ACETAMINOPHEN\HYDROCODONE BITARTRATE
     Indication: Product used for unknown indication
     Dosage: 5-325 TABLET EVERY 6 (SIX) HOURS
  5. ZOVIRAX [Concomitant]
     Active Substance: ACYCLOVIR
     Indication: Product used for unknown indication
     Dosage: TAKE ONE TABLET (400 MG TOTAL) BY MOUTH 2 (TWO) TIMES A DAY?FORM STRENGTH: 400 MILLIGRAM
     Route: 048
  6. MORPHINE [Concomitant]
     Active Substance: MORPHINE
     Indication: Product used for unknown indication
     Dosage: TAKE 2.5 ML (5 MG)WHEN INSTRUCTED BY BONE MARROW PROCUREMENT STAFF. MAY REPEAT ONCE?10 MG/5 ML SO...
     Route: 048
  7. ZOFRAN [Concomitant]
     Active Substance: ONDANSETRON HYDROCHLORIDE
     Indication: Product used for unknown indication
     Dosage: DISSOLVE ONE TABLET (4 MG TOTAL) ON TONGUE EVERY 8 (EIGHT) HOURS AS NEEDED?FORM STRENGTH: 4 MILLI...
     Route: 048
  8. LIDODERM [Concomitant]
     Active Substance: LIDOCAINE
     Indication: Product used for unknown indication
     Dosage: REMOVE PATCH AFTER 12 HOURS, NO MORE THAN 1 PATCH SHOULD BE USED IN A 24 HOUR PERIOD?FORM STRENGT...
  9. LISINOPRIL [Concomitant]
     Active Substance: LISINOPRIL
     Indication: Product used for unknown indication
     Dosage: TAKE ONE TABLET (20 MG TOTAL) BY MOUTH DAILY?FORM STRENGTH: 20 MILLIGRAM
     Route: 048
  10. VENTOLIN [Concomitant]
     Active Substance: ALBUTEROL SULFATE
     Indication: Dyspnoea
     Dosage: INHALE TWO PUFFS INTO THE LUNGS AS DIRECTED. 2 PUFFS PRIOR TO INJECTION AND EVERY 6 HOURS, AS NEE...
     Route: 055
  11. ATIVAN [Concomitant]
     Active Substance: LORAZEPAM
     Indication: Product used for unknown indication
     Dosage: 1 TABLET (1 MG) BY MOUTH WHEN INSTRUCTED BY BONE MARROW PROCUREMENT STAFF
  12. ATIVAN [Concomitant]
     Active Substance: LORAZEPAM
     Indication: Product used for unknown indication
     Dosage: 1 TABLET (1 MG) BY MOUTH WHEN INSTRUCTED BY BONE MARROW PROCUREMENT STAFF
     Route: 048
  13. PROTONIX [Concomitant]
     Active Substance: PANTOPRAZOLE SODIUM
     Indication: Product used for unknown indication
     Dosage: TAKE ONE TABLET 40 MG TOTAL BY MOUTH DAILY?FORM STRENGTH: 40 MILLIGRAM
     Route: 048
  14. ALLEGRA [Concomitant]
     Active Substance: FEXOFENADINE HYDROCHLORIDE
     Indication: Product used for unknown indication
     Dosage: TAKE ONE TABLET (180 MG TOTAL) BY MOUTH DAILY?FORM STRENGTH: 180 MILLIGRAM
     Route: 048
  15. ULTRAM [Concomitant]
     Active Substance: TRAMADOL HYDROCHLORIDE
     Indication: Pain
     Dosage: FORM STRENGTH: 50 MILLIGRAM?PRN (AS THE THING IS NEEDED), TAKE ONE ( 50 MG TOTAL) TABLET BY MOUTH...
     Route: 048
  16. ZYLOPRIM [Concomitant]
     Active Substance: ALLOPURINOL
     Indication: Product used for unknown indication
     Dosage: TAKE ONE TABLET (100 MG TOTAL) BY MOUTH DAILY?FORM STRENGTH: 100 MILLIGRAM
     Route: 048

REACTIONS (4)
  - Spinal operation [Unknown]
  - Myocardial infarction [Unknown]
  - Infection [Unknown]
  - Off label use [Unknown]

NARRATIVE: CASE EVENT DATE: 20230807
